FAERS Safety Report 18578162 (Version 1)
Quarter: 2020Q4

REPORT INFORMATION
  Report Type: Report from Study
  Country: None (occurrence: US)
  Receive Date: 20201204
  Receipt Date: 20201204
  Transmission Date: 20210114
  Serious: Yes (Hospitalization)
  Sender: FDA-Public Use
  Company Number: US-CLINIGEN GROUP PLC/ CLINIGEN HEALTHCARE LTD-US-CLGN-20-00537

PATIENT
  Age: 62 Year
  Sex: Male
  Weight: 81.7 kg

DRUGS (4)
  1. LIFILEUCEL. [Suspect]
     Active Substance: LIFILEUCEL
     Indication: METASTATIC MALIGNANT MELANOMA
     Dosage: THREE BAGS
     Route: 042
     Dates: start: 20200113, end: 20200113
  2. CYCLOPHOSPHAMIDE. [Suspect]
     Active Substance: CYCLOPHOSPHAMIDE
     Indication: METASTATIC MALIGNANT MELANOMA
     Route: 042
     Dates: start: 20200106, end: 20200107
  3. FLUDARABINE [Suspect]
     Active Substance: FLUDARABINE PHOSPHATE
     Indication: METASTATIC MALIGNANT MELANOMA
     Route: 042
     Dates: start: 20200108, end: 20200112
  4. PROLEUKIN [Suspect]
     Active Substance: ALDESLEUKIN
     Indication: METASTATIC MALIGNANT MELANOMA
     Route: 042
     Dates: start: 20200113, end: 20200114

REACTIONS (1)
  - Pleural effusion [Recovered/Resolved]

NARRATIVE: CASE EVENT DATE: 20200118
